FAERS Safety Report 7832484-0 (Version None)
Quarter: 2011Q4

REPORT INFORMATION
  Report Type: 
  Country: None (occurrence: None)
  Receive Date: 20111023
  Receipt Date: 20111010
  Transmission Date: 20120403
  Serious: Yes (Hospitalization, Other)
  Sender: FDA-Public Use
  Company Number: US-ELI_LILLY_AND_COMPANY-US201109000771

PATIENT
  Sex: Female
  Weight: 68 kg

DRUGS (7)
  1. FORTEO [Suspect]
     Indication: OSTEOPOROSIS
     Dosage: 20 UG, QD
     Route: 065
     Dates: start: 20100901
  2. HYDROCODONE BITARTRATE [Concomitant]
  3. SYNTHROID [Concomitant]
  4. AMBIEN [Concomitant]
  5. TYLENOL                                 /SCH/ [Concomitant]
  6. VICODIN [Concomitant]
  7. NAPROXEN [Concomitant]

REACTIONS (5)
  - ANKLE FRACTURE [None]
  - FALL [None]
  - TIBIA FRACTURE [None]
  - FIBULA FRACTURE [None]
  - FRACTURE DELAYED UNION [None]
